FAERS Safety Report 5398167-4 (Version None)
Quarter: 2007Q3

REPORT INFORMATION
  Report Type: 
  Country: None (occurrence: None)
  Receive Date: 20070726
  Receipt Date: 20070715
  Transmission Date: 20080115
  Serious: Yes (Hospitalization, Other)
  Sender: FDA-Public Use
  Company Number: US-SHR-US-2006-005924

PATIENT
  Age: 53 Year
  Sex: Female

DRUGS (3)
  1. BETASERON [Suspect]
     Indication: RELAPSING-REMITTING MULTIPLE SCLEROSIS
     Dosage: 8 MIU, EVERY 2D
     Route: 058
     Dates: start: 20050508, end: 20060320
  2. BETASERON [Suspect]
     Dosage: 8 MIU, EVERY 2D
     Route: 058
     Dates: start: 20010226, end: 20050201
  3. BETASERON [Suspect]
     Dosage: 8 MIU, EVERY 2D
     Route: 058
     Dates: start: 20060414

REACTIONS (4)
  - GALLBLADDER NON-FUNCTIONING [None]
  - HEPATIC STEATOSIS [None]
  - IMPAIRED GASTRIC EMPTYING [None]
  - INJECTION SITE ERYTHEMA [None]
